FAERS Safety Report 7620790-4 (Version None)
Quarter: 2011Q3

REPORT INFORMATION
  Report Type: 
  Country: None (occurrence: None)
  Receive Date: 20110719
  Receipt Date: 20110708
  Transmission Date: 20111222
  Serious: Yes (Disabling, Other)
  Sender: FDA-Public Use
  Company Number: PHHY2011GB53082

PATIENT
  Age: 70 Year
  Sex: Female

DRUGS (1)
  1. CEFUROXIME [Suspect]
     Dosage: 1 ML, UNK
     Route: 031

REACTIONS (10)
  - RETINAL INFARCTION [None]
  - CYSTOID MACULAR OEDEMA [None]
  - RETINAL OEDEMA [None]
  - INTRAOCULAR PRESSURE INCREASED [None]
  - INCORRECT DOSE ADMINISTERED [None]
  - INCORRECT ROUTE OF DRUG ADMINISTRATION [None]
  - RETINAL VASCULAR DISORDER [None]
  - MACULAR SCAR [None]
  - MACULAR ISCHAEMIA [None]
  - RETINAL HAEMORRHAGE [None]
